FAERS Safety Report 4896396-7 (Version None)
Quarter: 2006Q1

REPORT INFORMATION
  Report Type: 
  Country: None (occurrence: None)
  Receive Date: 20060131
  Receipt Date: 20060119
  Transmission Date: 20060701
  Serious: Yes (Hospitalization)
  Sender: FDA-Public Use
  Company Number: DE-BRISTOL-MYERS SQUIBB COMPANY-13253851

PATIENT
  Age: 66 Year
  Sex: Male

DRUGS (7)
  1. CISPLATIN [Suspect]
     Indication: NON-SMALL CELL LUNG CANCER
     Route: 042
     Dates: start: 20060105, end: 20060105
  2. PACLITAXEL [Suspect]
     Indication: NON-SMALL CELL LUNG CANCER
     Route: 042
     Dates: start: 20060105, end: 20060105
  3. EUTHYROX [Concomitant]
  4. LOCOL [Concomitant]
  5. BISOPROLOL [Concomitant]
  6. ENAHEXAL [Concomitant]
  7. ASPIRIN [Concomitant]

REACTIONS (3)
  - DEHYDRATION [None]
  - DIARRHOEA [None]
  - FATIGUE [None]
